FAERS Safety Report 22017832 (Version 1)
Quarter: 2023Q1

REPORT INFORMATION
  Report Type: Spontaneous
  Country: US (occurrence: US)
  Receive Date: 20230221
  Receipt Date: 20230221
  Transmission Date: 20230418
  Serious: No
  Sender: FDA-Public Use
  Company Number: US-ABBVIE-4270057

PATIENT

DRUGS (1)
  1. SYNTHROID [Suspect]
     Active Substance: LEVOTHYROXINE SODIUM
     Indication: Product used for unknown indication
     Dosage: LAST ADMIN DATE:2022
     Route: 065

REACTIONS (4)
  - Depression [Unknown]
  - Blood test abnormal [Unknown]
  - Inflammation [Unknown]
  - Depressed mood [Unknown]
